FAERS Safety Report 4448011-4 (Version None)
Quarter: 2004Q3

REPORT INFORMATION
  Report Type: 
  Country: None (occurrence: None)
  Receive Date: 20040913
  Receipt Date: 20030605
  Transmission Date: 20050211
  Serious: Yes (Disabling, Other)
  Sender: FDA-Public Use
  Company Number: US-MERCK-0306USA00841

PATIENT
  Age: 57 Year
  Sex: Female

DRUGS (1)
  1. VIOXX [Suspect]
     Route: 048
     Dates: end: 20010401

REACTIONS (14)
  - ADVERSE EVENT [None]
  - ANXIETY [None]
  - ARTHROPATHY [None]
  - ATELECTASIS [None]
  - CARDIAC FAILURE CONGESTIVE [None]
  - CAROTID ARTERY DISEASE [None]
  - DEPRESSION [None]
  - DIZZINESS [None]
  - HEMIPARESIS [None]
  - HYPERSENSITIVITY [None]
  - HYPERTENSION [None]
  - OSTEOARTHRITIS [None]
  - RASH MACULAR [None]
  - UTERINE DISORDER [None]
